FAERS Safety Report 6987176-7 (Version None)
Quarter: 2010Q3

REPORT INFORMATION
  Report Type: 
  Country: None (occurrence: None)
  Receive Date: 20100916
  Receipt Date: 20100909
  Transmission Date: 20110219
  Serious: Yes (Other)
  Sender: FDA-Public Use
  Company Number: FR-PFIZER INC-2010045087

PATIENT
  Age: 77 Year
  Sex: Male
  Weight: 85 kg

DRUGS (7)
  1. TAHOR [Suspect]
     Indication: MYOCARDIAL INFARCTION
     Dosage: 40 MG PER DAY
     Route: 048
     Dates: start: 20091109, end: 20091124
  2. TAHOR [Suspect]
     Indication: CORONARY ARTERY DISEASE
  3. KARDEGIC [Concomitant]
     Indication: CORONARY ARTERY DISEASE
     Dosage: 75 MG, 1X/DAY
     Route: 048
     Dates: start: 20091109
  4. BISOPROLOL FUMARATE [Concomitant]
     Indication: CORONARY ARTERY DISEASE
     Dosage: 5 MG, 1X/DAY
     Route: 048
     Dates: start: 20091109
  5. INSPRA [Concomitant]
     Indication: CORONARY ARTERY DISEASE
     Dosage: 25 MG, 1X/DAY
     Route: 048
     Dates: start: 20091109
  6. LYRICA [Concomitant]
     Indication: NEURALGIA
     Dosage: 150 MG, TWO TABLETS PER DAY
     Route: 048
     Dates: start: 20091109
  7. XYZAL [Concomitant]
     Indication: HYPERSENSITIVITY
     Dosage: 5 MG, 1X/DAY
     Route: 048
     Dates: start: 20091110

REACTIONS (3)
  - VERTIGO [None]
  - VISION BLURRED [None]
  - VISUAL IMPAIRMENT [None]
